FAERS Safety Report 4685711-5 (Version None)
Quarter: 2005Q2

REPORT INFORMATION
  Report Type: 
  Country: None (occurrence: None)
  Receive Date: 20050608
  Receipt Date: 20050520
  Transmission Date: 20051028
  Serious: Yes (Other)
  Sender: FDA-Public Use
  Company Number: DSA_26029_2005

PATIENT
  Age: 63 Year
  Sex: Female

DRUGS (2)
  1. EMESTAR PLUS (EPORSARTAN PLUS HYDROCHLORTHIAZIED) [Suspect]
     Indication: HYPERTENSION
     Dosage: DF Q DAY PO
     Route: 048
     Dates: start: 20041014, end: 20041120
  2. CONCOR [Concomitant]

REACTIONS (5)
  - AGITATION [None]
  - DIZZINESS [None]
  - HEADACHE [None]
  - NERVOUSNESS [None]
  - SLEEP DISORDER [None]
